FAERS Safety Report 4779000-8 (Version None)
Quarter: 2005Q3

REPORT INFORMATION
  Report Type: 
  Country: None (occurrence: None)
  Receive Date: 20050923
  Receipt Date: 20050913
  Transmission Date: 20060218
  Serious: Yes (Hospitalization)
  Sender: FDA-Public Use
  Company Number: 002-0981-M0200189

PATIENT
  Age: 46 Year
  Sex: Female
  Weight: 104.3273 kg

DRUGS (8)
  1. ATORVASTATIN CALCIUM [Suspect]
     Indication: HYPERLIPIDAEMIA
     Dosage: 20 MG (DAILY), ORAL
     Route: 048
     Dates: start: 20011030
  2. METFORMIN HCL [Concomitant]
  3. ZESTIL (LISINOPRIL) [Concomitant]
  4. IBUPROFEN [Concomitant]
  5. URISPAS [Concomitant]
  6. FLONASE [Concomitant]
  7. MULTIVITAMIN [Concomitant]
  8. MERIDIA [Concomitant]

REACTIONS (9)
  - ABDOMINAL HERNIA [None]
  - BLISTER [None]
  - BREAST MICROCALCIFICATION [None]
  - DISEASE RECURRENCE [None]
  - ILEUS PARALYTIC [None]
  - POST PROCEDURAL COMPLICATION [None]
  - POSTOPERATIVE INFECTION [None]
  - SLEEP DISORDER [None]
  - THERMAL BURN [None]
